FAERS Safety Report 15367537 (Version 2)
Quarter: 2018Q4

REPORT INFORMATION
  Report Type: Spontaneous
  Country: US (occurrence: US)
  Receive Date: 20180910
  Receipt Date: 20181024
  Transmission Date: 20190204
  Serious: Yes (Other)
  Sender: FDA-Public Use
  Company Number: US-ENDO PHARMACEUTICALS INC-2018-041002

PATIENT
  Sex: Male

DRUGS (2)
  1. AVEED [Suspect]
     Active Substance: TESTOSTERONE UNDECANOATE
     Indication: BLOOD TESTOSTERONE DECREASED
     Dosage: 750 MG, ONCE EVERY 10WK
     Route: 030
     Dates: start: 20180828
  2. AVEED [Suspect]
     Active Substance: TESTOSTERONE UNDECANOATE
     Dosage: 750 MG, ONCE EVERY 10WK
     Route: 030
     Dates: start: 201706

REACTIONS (11)
  - Asthenia [Recovered/Resolved]
  - Lymphoma [Unknown]
  - Anal incontinence [Recovered/Resolved]
  - Injection site pain [Recovered/Resolved]
  - Incorrect drug administration rate [Recovered/Resolved]
  - Groin pain [Unknown]
  - Chills [Recovered/Resolved]
  - Fatigue [Recovered/Resolved]
  - Dyspnoea exertional [Recovered/Resolved]
  - Arthralgia [Unknown]
  - Abdominal pain [Recovered/Resolved]

NARRATIVE: CASE EVENT DATE: 201808
